FAERS Safety Report 23385142 (Version 1)
Quarter: 2024Q1

REPORT INFORMATION
  Report Type: Spontaneous
  Country: US (occurrence: US)
  Receive Date: 20240110
  Receipt Date: 20240110
  Transmission Date: 20240410
  Serious: No
  Sender: FDA-Public Use
  Company Number: US-BoehringerIngelheim-2024-BI-001407

PATIENT
  Age: 89 Year
  Sex: Female

DRUGS (2)
  1. STRIVERDI RESPIMAT [Suspect]
     Active Substance: OLODATEROL HYDROCHLORIDE
     Indication: Chronic obstructive pulmonary disease
     Dosage: 2 PUFFS IN THE MORNING (INHALATION PSRAY)
     Dates: start: 2013
  2. SPIRIVA RESPIMAT [Suspect]
     Active Substance: TIOTROPIUM BROMIDE
     Indication: Chronic obstructive pulmonary disease
     Dosage: 2 PUFFS IN THE EVENING (INHALATION SPRAY)
     Dates: start: 2013

REACTIONS (1)
  - Influenza [Not Recovered/Not Resolved]

NARRATIVE: CASE EVENT DATE: 20231231
